FAERS Safety Report 8279233-2 (Version None)
Quarter: 2012Q2

REPORT INFORMATION
  Report Type: 
  Country: None (occurrence: None)
  Receive Date: 20120412
  Receipt Date: 20120117
  Transmission Date: 20120825
  Serious: No
  Sender: FDA-Public Use
  Company Number: US-ASTRAZENECA-2012SE03584

PATIENT
  Age: 73 Year
  Sex: Male
  Weight: 127 kg

DRUGS (9)
  1. NEXIUM [Suspect]
     Indication: GASTROOESOPHAGEAL REFLUX DISEASE
     Route: 048
  2. IRON SUPPLEMENTS OTC [Concomitant]
     Indication: ANAEMIA
  3. CARDURA [Concomitant]
  4. FUROSEMIDE [Concomitant]
  5. DIOVAN [Concomitant]
  6. PRILOSEC [Suspect]
     Route: 048
  7. WARFARIN SODIUM [Concomitant]
  8. PROSCAR [Concomitant]
     Indication: BENIGN PROSTATIC HYPERPLASIA
  9. VYTORIN [Concomitant]

REACTIONS (5)
  - BRONCHOSPASM [None]
  - DYSPNOEA [None]
  - RESTRICTIVE PULMONARY DISEASE [None]
  - RESPIRATORY DISORDER [None]
  - OFF LABEL USE [None]
